FAERS Safety Report 4503071-7 (Version None)
Quarter: 2004Q4

REPORT INFORMATION
  Report Type: 
  Country: None (occurrence: None)
  Receive Date: 20041116
  Receipt Date: 20041116
  Transmission Date: 20050328
  Serious: Yes (Other)
  Sender: FDA-Public Use
  Company Number: None

PATIENT
  Sex: Female
  Weight: 23.587 kg

DRUGS (3)
  1. CHILDREN'S MOTRIN [Suspect]
     Indication: HEADACHE
     Dosage: 4  6 TO 8 HOURS ORAL
     Route: 048
     Dates: start: 20041103, end: 20041103
  2. CHILDREN'S MOTRIN [Suspect]
     Indication: PAIN
     Dosage: 4  6 TO 8 HOURS ORAL
     Route: 048
     Dates: start: 20041103, end: 20041103
  3. CHILDREN'S MOTRIN [Suspect]
     Indication: PYREXIA
     Dosage: 4  6 TO 8 HOURS ORAL
     Route: 048
     Dates: start: 20041103, end: 20041103

REACTIONS (2)
  - ORAL DISCOMFORT [None]
  - THROAT IRRITATION [None]
